FAERS Safety Report 10501178 (Version 1)
Quarter: 2014Q4

REPORT INFORMATION
  Report Type: Spontaneous
  Country: US (occurrence: None)
  Receive Date: 20141006
  Receipt Date: 20141006
  Transmission Date: 20150528
  Serious: No
  Sender: FDA-Public Use
  Company Number: None

PATIENT
  Age: 14 Month
  Sex: Female
  Weight: 9.98 kg

DRUGS (1)
  1. BABY TEETHING [Suspect]
     Active Substance: ARABICA COFFEE BEAN\ATROPA BELLADONNA\CALCIUM PHOSPHATE\CHAMOMILE
     Indication: TEETHING
     Dates: start: 20141003, end: 20141003

REACTIONS (6)
  - Hallucination [None]
  - Anxiety [None]
  - Nervousness [None]
  - Head banging [None]
  - Feeling abnormal [None]
  - Delirium [None]

NARRATIVE: CASE EVENT DATE: 20141003
